FAERS Safety Report 11793411 (Version 2)
Quarter: 2016Q1

REPORT INFORMATION
  Report Type: Spontaneous
  Country: JP (occurrence: JP)
  Receive Date: 20151202
  Receipt Date: 20160128
  Transmission Date: 20160525
  Serious: Yes (Death, Other)
  Sender: FDA-Public Use
  Company Number: JP-SA-2015SA129410

PATIENT
  Age: 79 Year
  Sex: Male
  Weight: 45 kg

DRUGS (5)
  1. NEUTROGIN [Concomitant]
     Active Substance: LENOGRASTIM
     Route: 042
  2. TAXOTERE [Suspect]
     Active Substance: DOCETAXEL
     Indication: PROSTATE CANCER
     Route: 042
     Dates: start: 20150810
  3. FUNGUARD [Concomitant]
     Active Substance: MICAFUNGIN SODIUM
     Route: 042
  4. LOXONIN [Concomitant]
     Active Substance: LOXOPROFEN SODIUM
  5. REBAMIPIDE [Concomitant]
     Active Substance: REBAMIPIDE

REACTIONS (3)
  - Interstitial lung disease [Fatal]
  - Febrile neutropenia [Unknown]
  - Dyspnoea [Fatal]

NARRATIVE: CASE EVENT DATE: 20150817
